FAERS Safety Report 6943087-4 (Version None)
Quarter: 2010Q3

REPORT INFORMATION
  Report Type: 
  Country: None (occurrence: None)
  Receive Date: 20100826
  Receipt Date: 20100817
  Transmission Date: 20110219
  Serious: Yes (Death, Hospitalization)
  Sender: FDA-Public Use
  Company Number: GXKR2010US09186

PATIENT
  Age: 71 Year
  Sex: Female

DRUGS (2)
  1. AMLODIPINE [Suspect]
     Dosage: 27 DF
     Route: 065
  2. INTRALIPID 20% [Suspect]
     Dosage: 2000 ML (}5 TIMES THE MAXIMUM SUGESSTED DOSE

REACTIONS (8)
  - ACIDOSIS [None]
  - ANAEMIA [None]
  - HYPONATRAEMIA [None]
  - HYPOTENSION [None]
  - MENTAL IMPAIRMENT [None]
  - OLIGURIA [None]
  - OVERDOSE [None]
  - PULMONARY OEDEMA [None]
